FAERS Safety Report 22330608 (Version 1)
Quarter: 2023Q2

REPORT INFORMATION
  Report Type: Spontaneous
  Country: CZ (occurrence: CZ)
  Receive Date: 20230517
  Receipt Date: 20230517
  Transmission Date: 20230722
  Serious: Yes (Death, Life-Threatening, Hospitalization, Disabling, Other)
  Sender: FDA-Public Use
  Company Number: CZ-CZSUKL-21011315

PATIENT
  Age: 67 Year
  Sex: Male
  Weight: 98 kg

DRUGS (17)
  1. CLARITHROMYCIN [Interacting]
     Active Substance: CLARITHROMYCIN
     Indication: Antibiotic therapy
     Dosage: 500 MG + 250 ML GLUCOSIS 5% I.V./1 HOUR (AT 8AM - 8PM)
     Route: 042
     Dates: start: 2021
  2. CLARITHROMYCIN [Interacting]
     Active Substance: CLARITHROMYCIN
     Dosage: UNK
     Route: 065
     Dates: start: 2021
  3. MULTAQ [Interacting]
     Active Substance: DRONEDARONE
     Indication: Atrial fibrillation
     Dosage: 400 MILLIGRAM, TWO TIMES A DAY
     Route: 048
     Dates: start: 20210518, end: 20210831
  4. ITRACONAZOLE [Interacting]
     Active Substance: ITRACONAZOLE
     Indication: Antibiotic therapy
     Dosage: UNK
     Route: 065
     Dates: start: 2021
  5. ITRACONAZOLE [Interacting]
     Active Substance: ITRACONAZOLE
     Dosage: 100 MILLIGRAM, TWO TIMES A DAY
     Route: 048
     Dates: start: 2021
  6. HUMALOG MIX50/50 [Concomitant]
     Active Substance: INSULIN LISPRO
     Indication: Product used for unknown indication
     Dosage: TWO TIMES A DAY (30-28-0)
     Route: 058
     Dates: start: 2021
  7. XARELTO [Concomitant]
     Active Substance: RIVAROXABAN
     Indication: Anticoagulant therapy
     Dosage: AT HOME
     Route: 065
  8. PREGLENIX [Concomitant]
     Indication: Product used for unknown indication
     Dosage: 150 MILLIGRAM, TWO TIMES A DAY
     Route: 048
     Dates: start: 2021
  9. THEOPHYLLINE [Concomitant]
     Active Substance: THEOPHYLLINE
     Indication: Product used for unknown indication
     Dosage: 125 MILLIGRAM, TWO TIMES A DAY
     Route: 048
  10. THEOPHYLLINE [Concomitant]
     Active Substance: THEOPHYLLINE
     Dosage: 250 MILLIGRAM, TWO TIMES A DAY
     Route: 048
     Dates: start: 2021
  11. METHIMAZOLE [Concomitant]
     Active Substance: METHIMAZOLE
     Indication: Product used for unknown indication
     Dosage: 30 MILLIGRAM, EVERY WEEK 10 MG, TIW (1/2-0-0) 3 TIMES A WEEK (MONDAY, WEDNESDAY, SATURDAY)
     Route: 048
     Dates: start: 2021
  12. OMEPRAZOLE [Concomitant]
     Active Substance: OMEPRAZOLE
     Indication: Product used for unknown indication
     Dosage: 40 MG 20 HOURS
     Route: 042
     Dates: start: 2021
  13. NADROPARIN CALCIUM [Concomitant]
     Active Substance: NADROPARIN CALCIUM
     Indication: Anticoagulant therapy
     Dosage: 0.8 MILLILITER 0.8 ML, BID (AT 8 AM - 8 PM)
     Route: 058
     Dates: start: 2021
  14. Novalgin [Concomitant]
     Indication: Product used for unknown indication
     Dosage: 1 GRAM
     Route: 042
     Dates: start: 2021
  15. TRANDOLAPRIL [Concomitant]
     Active Substance: TRANDOLAPRIL
     Indication: Product used for unknown indication
     Dosage: 2 MILLIGRAM, ONCE A DAY
     Route: 048
     Dates: start: 2021
  16. RILMENIDINE [Concomitant]
     Active Substance: RILMENIDINE
     Indication: Product used for unknown indication
     Dosage: 1 MILLIGRAM, TWO TIMES A DAY
     Route: 048
     Dates: start: 2021
  17. HUMALOG MIX75/25 [Concomitant]
     Active Substance: INSULIN LISPRO
     Indication: Product used for unknown indication
     Dosage: (0-0-30)
     Route: 058
     Dates: start: 2021

REACTIONS (9)
  - Lung disorder [Fatal]
  - Pyrexia [Fatal]
  - Candida pneumonia [Fatal]
  - Pulmonary toxicity [Fatal]
  - Enterobacter pneumonia [Fatal]
  - Dyspnoea [Fatal]
  - Respiratory failure [Fatal]
  - Pneumonia klebsiella [Fatal]
  - Drug interaction [Unknown]

NARRATIVE: CASE EVENT DATE: 20210101
